FAERS Safety Report 6127303 (Version 17)
Quarter: 2013Q3

REPORT INFORMATION
  Report Type: Spontaneous
  Country: US (occurrence: US)
  Receive Date: 20060914
  Receipt Date: 20130819
  Transmission Date: 20140515
  Serious: Yes (Other)
  Sender: FDA-Public Use
  Company Number: PHEH2006US11382

PATIENT
  Age: 70 Year
  Sex: Female
  Weight: 77.55 kg

DRUGS (15)
  1. ZOMETA [Suspect]
     Indication: LEIOMYOSARCOMA
     Dates: start: 2003, end: 200604
  2. TIAZAC [Concomitant]
  3. DIOVAN ^CIBA-GEIGY^ [Concomitant]
  4. FEMARA [Concomitant]
  5. CHEMOTHERAPEUTICS NOS [Concomitant]
     Dates: start: 2003
  6. RADIATION [Concomitant]
  7. TAXOTERE [Concomitant]
     Dates: start: 2003
  8. PREMARIN                                /NEZ/ [Concomitant]
  9. GEMZAR [Concomitant]
  10. ADRIAMYCIN [Concomitant]
  11. IFEX [Concomitant]
  12. MESNA [Concomitant]
  13. ATIVAN [Concomitant]
  14. CELEBREX [Concomitant]
  15. CIPROFLOXACIN [Concomitant]

REACTIONS (45)
  - Pleural effusion [Unknown]
  - Chest wall mass [Unknown]
  - Cellulitis [Unknown]
  - Osteonecrosis of jaw [Unknown]
  - Bone disorder [Unknown]
  - Pain [Unknown]
  - Deformity [Unknown]
  - Emotional distress [Unknown]
  - Anxiety [Unknown]
  - Life expectancy shortened [Unknown]
  - General physical health deterioration [Unknown]
  - Decreased interest [Unknown]
  - Hypophagia [Unknown]
  - Tooth infection [Unknown]
  - Oral cavity fistula [Recovering/Resolving]
  - Infection [Unknown]
  - Impaired healing [Unknown]
  - Metastases to bone [Unknown]
  - Bone erosion [Unknown]
  - Breast calcifications [Unknown]
  - Sinusitis [Unknown]
  - Pulmonary mass [Unknown]
  - Malignant neoplasm progression [Unknown]
  - Tooth abscess [Unknown]
  - Leiomyosarcoma metastatic [Unknown]
  - Metastases to muscle [Unknown]
  - Syncope [Unknown]
  - Hypokalaemia [Unknown]
  - Inguinal mass [Unknown]
  - Joint destruction [Unknown]
  - Sarcoma of skin [Unknown]
  - Cataract [Unknown]
  - Vision blurred [Unknown]
  - Ocular discomfort [Unknown]
  - Orbital infection [Unknown]
  - Loss of consciousness [Unknown]
  - Dyspnoea [Unknown]
  - Wheezing [Unknown]
  - Nausea [Unknown]
  - Vomiting [Unknown]
  - Constipation [Unknown]
  - Intervertebral disc protrusion [Unknown]
  - Spondylolisthesis [Unknown]
  - Haemangioma [Unknown]
  - Nodule [Unknown]
